FAERS Safety Report 6470957-6 (Version None)
Quarter: 2009Q4

REPORT INFORMATION
  Report Type: 
  Country: None (occurrence: None)
  Receive Date: 20091203
  Receipt Date: 20080110
  Transmission Date: 20100525
  Serious: Yes (Death)
  Sender: FDA-Public Use
  Company Number: TR-ELI_LILLY_AND_COMPANY-TR200801002418

PATIENT
  Sex: Female

DRUGS (2)
  1. HUMULIN 70/30 [Suspect]
     Indication: TYPE 2 DIABETES MELLITUS
     Dosage: 28 UNITS/MORNING AND 10 UNITS/EVENING
     Route: 058
     Dates: start: 19990101
  2. HUMULIN 70/30 [Suspect]
     Dosage: 16 U, EACH EVENING
     Route: 058
     Dates: start: 19990101

REACTIONS (5)
  - ARTERIOSCLEROSIS [None]
  - BLOOD UREA [None]
  - BLOOD UREA ABNORMAL [None]
  - HYPERTENSION [None]
  - TYPE 2 DIABETES MELLITUS [None]
